FAERS Safety Report 6030520-8 (Version None)
Quarter: 2009Q1

REPORT INFORMATION
  Report Type: 
  Country: None (occurrence: None)
  Receive Date: 20090105
  Receipt Date: 20090105
  Transmission Date: 20090719
  Serious: Yes (Hospitalization)
  Sender: FDA-Public Use
  Company Number: None

PATIENT
  Age: 32 Year
  Sex: Female
  Weight: 147.419 kg

DRUGS (1)
  1. LIDODERM [Suspect]
     Indication: MYALGIA
     Dosage: APPLY FOR 12 HOURS TOP
     Route: 061
     Dates: start: 20081231, end: 20081231

REACTIONS (6)
  - ASTHENIA [None]
  - BLOOD PRESSURE INCREASED [None]
  - DYSPNOEA [None]
  - FLUSHING [None]
  - HEART RATE INCREASED [None]
  - SOMNOLENCE [None]
